FAERS Safety Report 15374899 (Version 1)
Quarter: 2018Q3

REPORT INFORMATION
  Report Type: Spontaneous
  Country: US (occurrence: US)
  Receive Date: 20180906
  Receipt Date: 20180906
  Transmission Date: 20181010
  Serious: No
  Sender: FDA-Public Use
  Company Number: None

PATIENT
  Age: 34 Year
  Sex: Female

DRUGS (4)
  1. MULTI VIT [Concomitant]
  2. METOHORMINE [Concomitant]
  3. VITAMIN D [Concomitant]
     Active Substance: CHOLECALCIFEROL
  4. SERTRALINE [Suspect]
     Active Substance: SERTRALINE HYDROCHLORIDE
     Indication: ANXIETY
     Dosage: ?          QUANTITY:1 DF DOSAGE FORM;?
     Route: 048
     Dates: start: 20180801, end: 20180901

REACTIONS (6)
  - Thinking abnormal [None]
  - Product substitution issue [None]
  - Weight increased [None]
  - Mental impairment [None]
  - Mood altered [None]
  - Panic attack [None]

NARRATIVE: CASE EVENT DATE: 20180801
